FAERS Safety Report 12518826 (Version 1)
Quarter: 2016Q2

REPORT INFORMATION
  Report Type: Spontaneous
  Country: US (occurrence: US)
  Receive Date: 20160630
  Receipt Date: 20160630
  Transmission Date: 20160815
  Serious: No
  Sender: FDA-Public Use
  Company Number: US-GLAXOSMITHKLINE-US2016GSK087845

PATIENT
  Age: 51 Year
  Sex: Male

DRUGS (1)
  1. TANZEUM [Suspect]
     Active Substance: ALBIGLUTIDE
     Indication: TYPE 2 DIABETES MELLITUS
     Dosage: 30 MG, WE
     Route: 042
     Dates: start: 201602

REACTIONS (8)
  - Diarrhoea [Recovered/Resolved]
  - Vertigo [Unknown]
  - Product preparation error [Unknown]
  - Vomiting [Unknown]
  - Emergency care examination [Unknown]
  - Dizziness [Unknown]
  - Gastroenteritis viral [Unknown]
  - Device use error [Unknown]

NARRATIVE: CASE EVENT DATE: 201602
